FAERS Safety Report 9701741 (Version 2)
Quarter: 2013Q4

REPORT INFORMATION
  Report Type: Spontaneous
  Country: US (occurrence: US)
  Receive Date: 20131121
  Receipt Date: 20131121
  Transmission Date: 20140711
  Serious: Yes (Other)
  Sender: FDA-Public Use
  Company Number: US-AMGEN-USASP2013068894

PATIENT
  Age: 27 Year
  Sex: Male
  Weight: 74.83 kg

DRUGS (1)
  1. ENBREL [Suspect]
     Indication: PSORIASIS
     Dosage: 50 MG/ML, QWK
     Route: 058
     Dates: start: 20100901

REACTIONS (1)
  - Mycobacterium tuberculosis complex test positive [Recovered/Resolved]
